FAERS Safety Report 4470431-2 (Version None)
Quarter: 2004Q3

REPORT INFORMATION
  Report Type: 
  Country: None (occurrence: None)
  Receive Date: 20040909
  Receipt Date: 20040617
  Transmission Date: 20050211
  Serious: Yes (Other)
  Sender: FDA-Public Use
  Company Number: A03200401966

PATIENT
  Age: 35 Year
  Sex: Male
  Weight: 92.0802 kg

DRUGS (6)
  1. ELOXATIN [Suspect]
     Indication: COLORECTAL CANCER METASTATIC
     Dosage: 177 MG OTHER - INTRAVENOUS NOS
     Route: 042
     Dates: start: 20040614, end: 20040614
  2. FLUOROURACIL [Concomitant]
  3. LEUCOVORIN CALCIUM [Concomitant]
  4. DEXAMETHASONE [Concomitant]
  5. BEVACIZUMAB [Concomitant]
  6. PALONOSETRON [Concomitant]

REACTIONS (6)
  - ANAPHYLACTIC REACTION [None]
  - DYSARTHRIA [None]
  - FEELING ABNORMAL [None]
  - FLUSHING [None]
  - HYPERTENSION [None]
  - WHEEZING [None]
